FAERS Safety Report 5238701-8 (Version None)
Quarter: 2007Q1

REPORT INFORMATION
  Report Type: 
  Country: None (occurrence: None)
  Receive Date: 20070215
  Receipt Date: 20070206
  Transmission Date: 20070707
  Serious: Yes (Hospitalization)
  Sender: FDA-Public Use
  Company Number: FR-PFIZER INC-2007011307

PATIENT
  Age: 23 Year
  Sex: Female

DRUGS (2)
  1. ATARAX [Suspect]
     Dosage: DAILY DOSE:3000MG
     Route: 048
     Dates: start: 20070201, end: 20070201
  2. ETHANOL [Suspect]

REACTIONS (1)
  - SUICIDE ATTEMPT [None]
